FAERS Safety Report 5967864-1 (Version None)
Quarter: 2008Q4

REPORT INFORMATION
  Report Type: 
  Country: None (occurrence: None)
  Receive Date: 20081126
  Receipt Date: 20081120
  Transmission Date: 20090506
  Serious: Yes (Other)
  Sender: FDA-Public Use
  Company Number: NL-ASTRAZENECA-2008AC03001

PATIENT
  Age: 0 Month
  Sex: Male
  Weight: 3 kg

DRUGS (1)
  1. SELOKEEN ZOC [Suspect]
     Indication: VENTRICULAR TACHYCARDIA
     Route: 064

REACTIONS (2)
  - BRADYCARDIA NEONATAL [None]
  - OXYGEN SATURATION DECREASED [None]
